FAERS Safety Report 12364060 (Version 1)
Quarter: 2016Q2

REPORT INFORMATION
  Report Type: Spontaneous
  Country: US (occurrence: US)
  Receive Date: 20160512
  Receipt Date: 20160512
  Transmission Date: 20160815
  Serious: No
  Sender: FDA-Public Use
  Company Number: US-BIOGEN-2016BI00208078

PATIENT

DRUGS (1)
  1. PLEGRIDY [Suspect]
     Active Substance: PEGINTERFERON BETA-1A
     Indication: MULTIPLE SCLEROSIS

REACTIONS (5)
  - Influenza like illness [Recovered/Resolved]
  - Injection site swelling [Unknown]
  - Adverse reaction [Unknown]
  - Injection site erythema [Unknown]
  - Injection site pain [Unknown]
